FAERS Safety Report 25858375 (Version 1)
Quarter: 2025Q3

REPORT INFORMATION
  Report Type: Spontaneous
  Country: EU (occurrence: EU)
  Receive Date: 20250929
  Receipt Date: 20250929
  Transmission Date: 20251020
  Serious: Yes (Other)
  Sender: DAIICHI
  Company Number: EU-ASTRAZENECA-202509EEA020126PL

PATIENT
  Sex: Female

DRUGS (1)
  1. ENHERTU [Suspect]
     Active Substance: FAM-TRASTUZUMAB DERUXTECAN-NXKI
     Indication: Hormone receptor negative HER2 positive breast cancer
     Route: 065

REACTIONS (1)
  - Hepatotoxicity [Unknown]
